FAERS Safety Report 4736329-7 (Version None)
Quarter: 2005Q3

REPORT INFORMATION
  Report Type: 
  Country: None (occurrence: None)
  Receive Date: 20050808
  Receipt Date: 20050729
  Transmission Date: 20060218
  Serious: Yes (Congenital Anomaly)
  Sender: FDA-Public Use
  Company Number: US-SOLVAY-00205002441

PATIENT
  Sex: Male

DRUGS (1)
  1. PROMETRIUM [Suspect]
     Indication: DRUG EXPOSURE DURING PREGNANCY
     Dosage: DAILY DOSE: 200 MILLIGRAM(S)
     Route: 064
     Dates: start: 20030101, end: 20040101

REACTIONS (2)
  - CRYPTORCHISM [None]
  - DRUG EXPOSURE DURING PREGNANCY [None]
